FAERS Safety Report 6316294-1 (Version None)
Quarter: 2009Q3

REPORT INFORMATION
  Report Type: 
  Country: None (occurrence: None)
  Receive Date: 20090819
  Receipt Date: 20090819
  Transmission Date: 20100115
  Serious: Yes (Hospitalization)
  Sender: FDA-Public Use
  Company Number: None

PATIENT
  Age: 36 Year
  Sex: Female
  Weight: 59 kg

DRUGS (5)
  1. LEVAQUIN [Suspect]
     Indication: PYELONEPHRITIS
     Dosage: 750MG DAILY IV BOLUS
     Route: 040
     Dates: start: 20090530, end: 20090602
  2. ACETAMINOPHEN [Concomitant]
  3. BICACODYL [Concomitant]
  4. CLINDAMYCIN [Concomitant]
  5. IBUPROFEN [Concomitant]

REACTIONS (3)
  - ASCITES [None]
  - ILEUS [None]
  - PLEURAL EFFUSION [None]
